FAERS Safety Report 8525297-8 (Version None)
Quarter: 2012Q3

REPORT INFORMATION
  Report Type: 
  Country: None (occurrence: None)
  Receive Date: 20120720
  Receipt Date: 20120718
  Transmission Date: 20120928
  Serious: Yes (Death, Other)
  Sender: FDA-Public Use
  Company Number: PHHY2012DE046878

PATIENT
  Age: 42 Year
  Sex: Female

DRUGS (5)
  1. BENZODIAZEPINES [Concomitant]
  2. LORAZEPAM [Concomitant]
  3. MELPERONE [Concomitant]
  4. CLOZAPINE [Suspect]
     Indication: SCHIZOPHRENIA
     Dosage: 500 MG, QD
     Route: 048
     Dates: end: 20120501
  5. RISPERIDONE [Concomitant]

REACTIONS (6)
  - BRONCHITIS [None]
  - TOXICITY TO VARIOUS AGENTS [None]
  - ANTIPSYCHOTIC DRUG LEVEL INCREASED [None]
  - CARDIOMYOPATHY [None]
  - SUICIDE ATTEMPT [None]
  - RIGHT VENTRICULAR FAILURE [None]
